FAERS Safety Report 5339183-8 (Version None)
Quarter: 2007Q2

REPORT INFORMATION
  Report Type: 
  Country: None (occurrence: None)
  Receive Date: 20070330
  Receipt Date: 20060315
  Transmission Date: 20071010
  Serious: Yes (Hospitalization)
  Sender: FDA-Public Use
  Company Number: 2006EN000092

PATIENT
  Age: 7 Year
  Sex: Female

DRUGS (1)
  1. ONCASPAR [Suspect]
     Indication: DRUG USE FOR UNKNOWN INDICATION
     Dosage: IV
     Route: 042
     Dates: end: 20060306

REACTIONS (6)
  - AGITATION [None]
  - FLUSHING [None]
  - LIP SWELLING [None]
  - RASH [None]
  - SWELLING FACE [None]
  - THROAT IRRITATION [None]
